FAERS Safety Report 5523576-X (Version None)
Quarter: 2007Q4

REPORT INFORMATION
  Report Type: 
  Country: None (occurrence: None)
  Receive Date: 20071121
  Receipt Date: 20071112
  Transmission Date: 20080405
  Serious: Yes (Other)
  Sender: FDA-Public Use
  Company Number: US-ABBOTT-07P-163-0424290-00

PATIENT
  Sex: Male

DRUGS (6)
  1. NIASPAN [Suspect]
     Indication: BLOOD CHOLESTEROL INCREASED
     Route: 048
     Dates: start: 20060101, end: 20060101
  2. NIASPAN [Suspect]
     Dosage: NIASPAN COATED
     Route: 048
     Dates: start: 20071105
  3. ACETYLSALICYLIC ACID SRT [Concomitant]
     Indication: PROPHYLAXIS
     Route: 048
     Dates: start: 20071105
  4. ACETYLSALICYLIC ACID SRT [Concomitant]
     Indication: FLUSHING
  5. FLUVOXAMINE MALEATE [Concomitant]
     Indication: BLOOD CHOLESTEROL
     Route: 048
  6. MULTIVITAMIN-OTC [Concomitant]
     Indication: DRUG USE FOR UNKNOWN INDICATION
     Route: 048

REACTIONS (4)
  - FAT TISSUE INCREASED [None]
  - GASTRIC DISORDER [None]
  - NAUSEA [None]
  - RETCHING [None]
